FAERS Safety Report 7370551-9 (Version None)
Quarter: 2011Q1

REPORT INFORMATION
  Report Type: 
  Country: None (occurrence: None)
  Receive Date: 20110323
  Receipt Date: 20110307
  Transmission Date: 20110831
  Serious: No
  Sender: FDA-Public Use
  Company Number: US-BAYER-2011-021385

PATIENT
  Sex: Female
  Weight: 54 kg

DRUGS (4)
  1. GLUCOSAMINE [Concomitant]
     Dosage: UNK
     Route: 048
  2. CENTRUM SILVER [Concomitant]
     Dosage: UNK
     Route: 048
  3. CALTRATE + D [CALCIUM,VITAMIN D NOS] [Concomitant]
     Dosage: UNK
     Route: 048
  4. ALEVE (CAPLET) [Suspect]
     Indication: PRODUCT USED FOR UNKNOWN INDICATION
     Dosage: 2 DF, UNK
     Route: 048

REACTIONS (1)
  - ABDOMINAL DISCOMFORT [None]
